FAERS Safety Report 20741815 (Version 1)
Quarter: 2022Q2

REPORT INFORMATION
  Report Type: Other
  Country: US (occurrence: None)
  Receive Date: 20220423
  Receipt Date: 20220423
  Transmission Date: 20220721
  Serious: Yes (Hospitalization)
  Sender: FDA-Public Use
  Company Number: US-ROCHE-3080788

PATIENT
  Sex: Female

DRUGS (1)
  1. OCREVUS [Suspect]
     Active Substance: OCRELIZUMAB
     Indication: Relapsing-remitting multiple sclerosis
     Dosage: ONCE EVERY 24 WEEKS?DATE OF TREATMENT: 17/NOV/2021
     Route: 065

REACTIONS (1)
  - COVID-19 [Unknown]
